FAERS Safety Report 24045197 (Version 1)
Quarter: 2024Q3

REPORT INFORMATION
  Report Type: Spontaneous
  Country: US (occurrence: US)
  Receive Date: 20240703
  Receipt Date: 20240703
  Transmission Date: 20241017
  Serious: Yes (Hospitalization)
  Sender: SPECGX
  Company Number: US-SPECGX-T202401295

PATIENT
  Sex: Female

DRUGS (4)
  1. ACETAMINOPHEN\OXYCODONE HYDROCHLORIDE [Suspect]
     Active Substance: ACETAMINOPHEN\OXYCODONE HYDROCHLORIDE
     Indication: Pain
     Dosage: 1 DOSAGE FORM, Q6H
     Route: 048
  2. MORPHINE [Suspect]
     Active Substance: MORPHINE
     Indication: Pain
     Dosage: UNK
     Route: 062
  3. KESIMPTA [Concomitant]
     Active Substance: OFATUMUMAB
     Indication: Multiple sclerosis
     Dosage: UNK
     Route: 065
  4. LYRICA [Concomitant]
     Active Substance: PREGABALIN
     Indication: Neuropathy peripheral
     Dosage: UNK
     Route: 065

REACTIONS (2)
  - Urinary tract infection [Unknown]
  - Loss of consciousness [Unknown]
